FAERS Safety Report 5414962-7 (Version None)
Quarter: 2007Q3

REPORT INFORMATION
  Report Type: 
  Country: None (occurrence: None)
  Receive Date: 20070813
  Receipt Date: 20070724
  Transmission Date: 20080115
  Serious: Yes (Other)
  Sender: FDA-Public Use
  Company Number: 2007RR-08921

PATIENT
  Age: 22 Year
  Sex: Female

DRUGS (1)
  1. MINOCYCLINE HCL [Suspect]
     Indication: ACNE

REACTIONS (6)
  - ARTHRALGIA [None]
  - ARTHRITIS [None]
  - AUTOIMMUNE DISORDER [None]
  - LIVEDO RETICULARIS [None]
  - MUSCULOSKELETAL STIFFNESS [None]
  - PYREXIA [None]
